FAERS Safety Report 5518534-5 (Version None)
Quarter: 2007Q4

REPORT INFORMATION
  Report Type: 
  Country: None (occurrence: None)
  Receive Date: 20071115
  Receipt Date: 20071017
  Transmission Date: 20080405
  Serious: Yes (Hospitalization, Other)
  Sender: FDA-Public Use
  Company Number: JP-PFIZER INC-2007087639

PATIENT
  Sex: Male
  Weight: 55.7 kg

DRUGS (7)
  1. PREGABALIN [Suspect]
     Indication: POST HERPETIC NEURALGIA
     Route: 048
     Dates: start: 20070718, end: 20071017
  2. DEPRODONE PROPIONATE [Concomitant]
  3. STADERM [Concomitant]
  4. MAGNESIUM OXIDE [Concomitant]
     Route: 048
  5. FLAVINE ADENINE DINUCLEOTIDE [Concomitant]
     Route: 048
  6. CLARITIN [Concomitant]
     Route: 048
  7. LIVALO [Concomitant]

REACTIONS (1)
  - MYOCARDIAL INFARCTION [None]
